FAERS Safety Report 7746733-0 (Version None)
Quarter: 2011Q3

REPORT INFORMATION
  Report Type: 
  Country: None (occurrence: None)
  Receive Date: 20110913
  Receipt Date: 20110907
  Transmission Date: 20111222
  Serious: Yes (Hospitalization)
  Sender: FDA-Public Use
  Company Number: JP-ABBOTT-11P-087-0852151-00

PATIENT
  Sex: Male

DRUGS (9)
  1. POLYCARBOPHIL CALCIUM [Concomitant]
     Indication: PRODUCT USED FOR UNKNOWN INDICATION
     Dosage: 3.6GM DAILY
     Route: 048
  2. POLAPREZINC [Concomitant]
     Indication: PRODUCT USED FOR UNKNOWN INDICATION
     Route: 048
  3. MESALAMINE [Concomitant]
     Indication: PRODUCT USED FOR UNKNOWN INDICATION
     Dosage: 1500MG DAILY
     Route: 048
  4. HUMIRA [Suspect]
     Indication: CROHN'S DISEASE
     Route: 058
     Dates: start: 20101211, end: 20101211
  5. FAMOTIDINE [Concomitant]
     Indication: PRODUCT USED FOR UNKNOWN INDICATION
     Dosage: 20MG DAILY
     Route: 048
  6. HUMIRA [Suspect]
     Dates: start: 20101225, end: 20101225
  7. LACTOMIN [Concomitant]
     Indication: PRODUCT USED FOR UNKNOWN INDICATION
     Dosage: 3GM DAILY
     Route: 048
  8. ALBUMIN TANNATE [Concomitant]
     Indication: PRODUCT USED FOR UNKNOWN INDICATION
     Dosage: 3GM DAILY
     Route: 048
  9. HUMIRA [Suspect]

REACTIONS (2)
  - MELAENA [None]
  - DUODENAL ULCER [None]
